FAERS Safety Report 6789835-8 (Version None)
Quarter: 2010Q2

REPORT INFORMATION
  Report Type: 
  Country: None (occurrence: None)
  Receive Date: 20100624
  Receipt Date: 20100616
  Transmission Date: 20101027
  Serious: Yes (Hospitalization)
  Sender: FDA-Public Use
  Company Number: PHHO2010DE04276

PATIENT
  Sex: Male
  Weight: 101 kg

DRUGS (4)
  1. CERTICAN [Suspect]
     Indication: LIVER TRANSPLANT
     Dosage: TWICE DAILY
     Route: 048
     Dates: start: 20100210
  2. TACROLIMUS [Suspect]
     Indication: LIVER TRANSPLANT
     Dosage: 6 MG, BID
     Route: 048
     Dates: start: 20100210
  3. TACROLIMUS [Suspect]
     Dosage: UNK
  4. CORTICOSTEROIDS [Concomitant]
     Indication: LIVER TRANSPLANT

REACTIONS (4)
  - DEHYDRATION [None]
  - DIZZINESS [None]
  - RENAL FAILURE [None]
  - VERTIGO [None]
